FAERS Safety Report 19983951 (Version 1)
Quarter: 2021Q4

REPORT INFORMATION
  Report Type: Spontaneous
  Country: US (occurrence: US)
  Receive Date: 20211021
  Receipt Date: 20211021
  Transmission Date: 20220303
  Serious: No
  Sender: FDA-Public Use
  Company Number: US-NEXGEN PHARMA, INC.-2120846

PATIENT
  Age: 18 Year
  Sex: Male

DRUGS (3)
  1. CHENODAL [Suspect]
     Active Substance: CHENODIOL
     Indication: Lipid metabolism disorder
     Route: 048
     Dates: start: 20210228
  2. DEPAKOTE [Concomitant]
     Active Substance: DIVALPROEX SODIUM
  3. CLOBAZAM [Concomitant]
     Active Substance: CLOBAZAM

REACTIONS (2)
  - Seizure [Not Recovered/Not Resolved]
  - Hepatic enzyme increased [Unknown]
